FAERS Safety Report 6787951-8 (Version None)
Quarter: 2010Q2

REPORT INFORMATION
  Report Type: 
  Country: None (occurrence: None)
  Receive Date: 20100623
  Receipt Date: 20080229
  Transmission Date: 20101027
  Serious: No
  Sender: FDA-Public Use
  Company Number: US-PFIZER INC-2008000332

PATIENT
  Sex: Female
  Weight: 65.77 kg

DRUGS (5)
  1. XALATAN [Suspect]
     Indication: INTRAOCULAR PRESSURE TEST ABNORMAL
     Dates: start: 20070101
  2. XAL-EASE [Suspect]
     Dates: start: 20071226, end: 20071227
  3. NO PRODUCT FOUND [Suspect]
  4. ATENOLOL [Concomitant]
  5. ALL OTHER THERAPEUTIC PRODUCTS [Concomitant]

REACTIONS (2)
  - DEVICE MALFUNCTION [None]
  - DRUG ADMINISTRATION ERROR [None]
